FAERS Safety Report 6202845-4 (Version None)
Quarter: 2009Q2

REPORT INFORMATION
  Report Type: 
  Country: None (occurrence: None)
  Receive Date: 20090526
  Receipt Date: 20090519
  Transmission Date: 20091009
  Serious: Yes (Hospitalization)
  Sender: FDA-Public Use
  Company Number: AU-ABBOTT-09P-008-0569232-00

PATIENT
  Sex: Male
  Weight: 160 kg

DRUGS (2)
  1. REDUCTIL 10MG [Suspect]
     Indication: WEIGHT DECREASED
     Route: 048
  2. REDUCTIL 10MG [Suspect]
     Dates: start: 20090420

REACTIONS (2)
  - FAT NECROSIS [None]
  - GASTROINTESTINAL INFLAMMATION [None]
